FAERS Safety Report 11503574 (Version 1)
Quarter: 2015Q3

REPORT INFORMATION
  Report Type: Spontaneous
  Country: FR (occurrence: FR)
  Receive Date: 20150914
  Receipt Date: 20150914
  Transmission Date: 20151125
  Serious: Yes (Other)
  Sender: FDA-Public Use
  Company Number: FR-MYLANLABS-2015M1029732

PATIENT

DRUGS (1)
  1. ATOVAQUONE/PROGUANILMYLAN 250 MG/100 MG, COMPRIM? PELLICUL? [Suspect]
     Active Substance: ATOVAQUONE\PROGUANIL HYDROCHLORIDE
     Indication: PROPHYLACTIC CHEMOTHERAPY
     Dosage: UNK
     Dates: start: 20150501, end: 20150506

REACTIONS (5)
  - Anxiety [Recovered/Resolved]
  - Decreased appetite [Recovered/Resolved]
  - Myocardial infarction [None]
  - Insomnia [Recovered/Resolved]
  - Suicidal ideation [Recovered/Resolved]

NARRATIVE: CASE EVENT DATE: 20150503
